FAERS Safety Report 6076314-9 (Version None)
Quarter: 2009Q1

REPORT INFORMATION
  Report Type: 
  Country: None (occurrence: None)
  Receive Date: 20090209
  Receipt Date: 20090128
  Transmission Date: 20090719
  Serious: Yes (Hospitalization)
  Sender: FDA-Public Use
  Company Number: 237340J08USA

PATIENT
  Age: 53 Year
  Sex: Female

DRUGS (8)
  1. REBIF [Suspect]
     Indication: MULTIPLE SCLEROSIS
     Dosage: 44 MCG, 3 IN 1 WEEKS, SUBCUTANEOUS
     Route: 058
     Dates: start: 20060206, end: 20081226
  2. UNSPECIFIED INTRAVENOUS AND ORAL ANTIBIOTICS (ANTIBIOTICS) [Suspect]
     Indication: LOCALISED INFECTION
  3. SILVADENE [Suspect]
     Indication: LOCALISED INFECTION
  4. PREDNISONE TAB [Concomitant]
  5. LABETALOL HCL [Concomitant]
  6. ASMANEX TWISTHALER [Concomitant]
  7. ALBUTEROL INHALER (SALBUTAMOL) [Concomitant]
  8. TYLENOL (COTYLENOL) [Concomitant]

REACTIONS (6)
  - HEPATIC ENZYME INCREASED [None]
  - HYPERTENSION [None]
  - KIDNEY FIBROSIS [None]
  - POSTOPERATIVE WOUND INFECTION [None]
  - RENAL FAILURE ACUTE [None]
  - SYNOVIAL CYST [None]
